FAERS Safety Report 13763957 (Version 1)
Quarter: 2017Q3

REPORT INFORMATION
  Report Type: Spontaneous
  Country: AT (occurrence: AT)
  Receive Date: 20170718
  Receipt Date: 20170718
  Transmission Date: 20171127
  Serious: Yes (Other)
  Sender: FDA-Public Use
  Company Number: AT-PFIZER INC-2017304327

PATIENT
  Age: 33 Year
  Sex: Male

DRUGS (8)
  1. TEMESTA [Suspect]
     Active Substance: LORAZEPAM
     Dosage: 2 MG, UNK
     Dates: start: 20170322, end: 20170322
  2. HALDOL [Suspect]
     Active Substance: HALOPERIDOL
     Dosage: 10 MG, UNK
     Dates: start: 20170320
  3. CONVULEX [Concomitant]
     Active Substance: VALPROIC ACID
     Dosage: 2000 MG, UNK
     Dates: start: 20170320, end: 20170320
  4. TEMESTA [Suspect]
     Active Substance: LORAZEPAM
     Dosage: 8 MG, UNK
     Dates: start: 20170320, end: 20170320
  5. PRAXITEN [Concomitant]
     Active Substance: OXAZEPAM
     Dosage: 300 MG, UNK
     Dates: start: 20170323
  6. TEMESTA [Suspect]
     Active Substance: LORAZEPAM
     Dosage: 6 MG, UNK
     Dates: start: 20170321, end: 20170321
  7. CONVULEX [Concomitant]
     Active Substance: VALPROIC ACID
     Dosage: 1500 MG, UNK
     Dates: start: 20170321, end: 20170321
  8. PRAXITEN [Concomitant]
     Active Substance: OXAZEPAM
     Dosage: 200 MG, UNK
     Dates: start: 20170322, end: 20170322

REACTIONS (1)
  - Bradycardia [Recovered/Resolved]

NARRATIVE: CASE EVENT DATE: 20170321
